FAERS Safety Report 17893269 (Version 1)
Quarter: 2020Q2

REPORT INFORMATION
  Report Type: Spontaneous
  Country: JP (occurrence: JP)
  Receive Date: 20200614
  Receipt Date: 20200614
  Transmission Date: 20200714
  Serious: Yes (Other)
  Sender: FDA-Public Use
  Company Number: JP-AMGEN-JPNSP2020092501

PATIENT

DRUGS (1)
  1. RANMARK [Suspect]
     Active Substance: DENOSUMAB
     Indication: METASTASES TO BONE
     Dosage: 120 MG, ONCE EVERY 4 WK
     Route: 065

REACTIONS (1)
  - Renal impairment [Not Recovered/Not Resolved]
